FAERS Safety Report 10255154 (Version 1)
Quarter: 2014Q2

REPORT INFORMATION
  Report Type: Spontaneous
  Country: BR (occurrence: BR)
  Receive Date: 20140624
  Receipt Date: 20140624
  Transmission Date: 20141212
  Serious: Yes (Hospitalization)
  Sender: FDA-Public Use
  Company Number: BR-ASTRAZENECA-2014SE45077

PATIENT
  Age: 53 Year
  Sex: Male
  Weight: 80 kg

DRUGS (3)
  1. ATACAND [Suspect]
     Indication: HYPERTENSION
     Dosage: 16 MG, 1/2 TABLET/OD
     Route: 048
     Dates: start: 2010
  2. BRILINTA [Suspect]
     Indication: CORONARY ARTERY OCCLUSION
     Route: 048
     Dates: start: 201405
  3. ANAFRANIL [Concomitant]
     Indication: LIMB DISCOMFORT
     Route: 048

REACTIONS (2)
  - Coronary artery occlusion [Recovered/Resolved]
  - Off label use [Not Recovered/Not Resolved]
